FAERS Safety Report 6772170-1 (Version None)
Quarter: 2010Q2

REPORT INFORMATION
  Report Type: 
  Country: None (occurrence: None)
  Receive Date: 20100616
  Receipt Date: 20090327
  Transmission Date: 20101027
  Serious: Yes (Hospitalization, Other)
  Sender: FDA-Public Use
  Company Number: PHHY2009TW60840

PATIENT

DRUGS (2)
  1. GLEEVEC [Suspect]
  2. TRANSFUSIONS [Concomitant]

REACTIONS (9)
  - BLISTER [None]
  - BREAST MASS [None]
  - DIARRHOEA [None]
  - FACE OEDEMA [None]
  - HAEMOGLOBIN DECREASED [None]
  - MELAENA [None]
  - PYREXIA [None]
  - TONGUE OPERATION [None]
  - VOMITING [None]
